FAERS Safety Report 23388114 (Version 1)
Quarter: 2024Q1

REPORT INFORMATION
  Report Type: Spontaneous
  Country: CA (occurrence: CA)
  Receive Date: 20240110
  Receipt Date: 20240110
  Transmission Date: 20240410
  Serious: Yes (Other)
  Sender: FDA-Public Use
  Company Number: CA-PFIZER INC-202300229569

PATIENT
  Age: 62 Year
  Sex: Male
  Weight: 91 kg

DRUGS (7)
  1. METHOTREXATE SODIUM [Suspect]
     Active Substance: METHOTREXATE SODIUM
     Dosage: 20 MG, WEEKLY
  2. METHOTREXATE SODIUM [Suspect]
     Active Substance: METHOTREXATE SODIUM
     Dosage: 15 MG, WEEKLY
     Route: 058
  3. INFLECTRA [Concomitant]
     Active Substance: INFLIXIMAB-DYYB
     Indication: Sarcoidosis
     Dosage: 425 MG, EVERY 6 WEEKS (WEEK 0 AND 2 AND THEN Q 6 WEEKS)
     Route: 042
     Dates: start: 20230814
  4. INFLECTRA [Concomitant]
     Active Substance: INFLIXIMAB-DYYB
     Dosage: 425 MG, EVERY 6 WEEKS (WEEK 0 AND 2 AND THEN Q 6 WEEKS)
     Route: 042
     Dates: start: 20231122
  5. INFLECTRA [Concomitant]
     Active Substance: INFLIXIMAB-DYYB
     Dosage: 425 MG, EVERY 6 WEEKS (WEEK 0 AND 2 AND THEN Q 6 WEEKS) (425MG, 6 WEEKS AND 1 DAY)
     Route: 042
     Dates: start: 20240104
  6. PREDNISONE [Concomitant]
     Active Substance: PREDNISONE
     Dosage: 10 MG
  7. ROSUVASTATIN CALCIUM [Concomitant]
     Active Substance: ROSUVASTATIN CALCIUM
     Dosage: 1 DF

REACTIONS (7)
  - Oxygen saturation abnormal [Not Recovered/Not Resolved]
  - Disease progression [Not Recovered/Not Resolved]
  - Dyspnoea [Unknown]
  - Gastroenteritis [Unknown]
  - Decreased appetite [Unknown]
  - COVID-19 [Unknown]
  - Off label use [Unknown]

NARRATIVE: CASE EVENT DATE: 20221101
